FAERS Safety Report 23550916 (Version 2)
Quarter: 2024Q1

REPORT INFORMATION
  Report Type: Report from Study
  Country: US (occurrence: US)
  Receive Date: 20240221
  Receipt Date: 20240329
  Transmission Date: 20240410
  Serious: Yes (Hospitalization, Other)
  Sender: FDA-Public Use
  Company Number: US-ABBVIE-5644292

PATIENT
  Age: 53 Year
  Sex: Female
  Weight: 92 kg

DRUGS (24)
  1. RINVOQ [Suspect]
     Active Substance: UPADACITINIB
     Indication: Psoriatic arthropathy
     Route: 048
     Dates: start: 20240119
  2. RINVOQ [Suspect]
     Active Substance: UPADACITINIB
     Indication: Psoriatic arthropathy
     Route: 048
     Dates: start: 20231017, end: 202312
  3. LEFLUNOMIDE [Concomitant]
     Active Substance: LEFLUNOMIDE
     Indication: Product used for unknown indication
  4. CLOBETASOL PROPIONATE [Concomitant]
     Active Substance: CLOBETASOL PROPIONATE
     Indication: Product used for unknown indication
     Dosage: AFFECTED AREAS OF SKIN AS NEEDED
  5. BETAMETHASONE [Concomitant]
     Active Substance: BETAMETHASONE\BETAMETHASONE DIPROPIONATE
     Indication: Product used for unknown indication
  6. LIDEX [Concomitant]
     Active Substance: FLUOCINONIDE
     Indication: Product used for unknown indication
     Dosage: 2-4 TIMES DAILY AS NEEDED FOR PSORIASIS
  7. COAL TAR [Concomitant]
     Active Substance: COAL TAR
     Indication: Product used for unknown indication
     Dosage: AS NEEDED?APPLY 20% EXTERNALLY TO AFFECTED AREA
  8. KETOCONAZOLE [Concomitant]
     Active Substance: KETOCONAZOLE
     Indication: Psoriasis
  9. VOLTAREN [Concomitant]
     Active Substance: DICLOFENAC SODIUM
     Indication: Product used for unknown indication
     Dosage: APPLY 1% EXTERNALLY TO AFFECTED AREA
  10. SULFASALAZINE [Concomitant]
     Active Substance: SULFASALAZINE
     Indication: Product used for unknown indication
  11. VITAMIN D3 [Concomitant]
     Active Substance: CHOLECALCIFEROL
     Indication: Product used for unknown indication
     Dosage: 2,000 UNITS (D-2000) 50 MCG (2,000 UNIT)
  12. CLOBETASOL [Concomitant]
     Active Substance: CLOBETASOL
     Indication: Product used for unknown indication
     Dosage: 0.05% EXTERNAL SOLUTION?APPLY EXTERNALLY TO AFFECTED AREA
  13. ALBUTEROL SULFATE [Concomitant]
     Active Substance: ALBUTEROL SULFATE
     Indication: Product used for unknown indication
     Dosage: 90 MCG
     Route: 055
  14. BIOTIN [Concomitant]
     Active Substance: BIOTIN
     Indication: Product used for unknown indication
     Dosage: 10000 MCG
     Route: 048
  15. FLONASE [Concomitant]
     Active Substance: FLUTICASONE PROPIONATE
     Indication: Product used for unknown indication
     Dosage: CONCENTRATION 50 NOSTRIL ONCE A DAY?USE IN EACH NOSTRIL MCG/SPRAY?SPRAY 1 SPRAY IN NOSTRIL ONCE A...
  16. ARAVA [Concomitant]
     Active Substance: LEFLUNOMIDE
     Indication: Product used for unknown indication
     Dosage: TAKE 1 TABLET TABLET 20 MG BY MOUTH ONCE A DAY FOR 90 DAYS
     Route: 048
  17. SYNTHROID [Concomitant]
     Active Substance: LEVOTHYROXINE SODIUM
     Indication: Product used for unknown indication
     Dosage: 125 MCG ?TAKE 1 TABLET (125 MCG) BY MOUTH ONCE A DAY
     Route: 048
  18. Lorata-dine d [Concomitant]
     Indication: Product used for unknown indication
     Route: 048
  19. B12 ACTIVE [Concomitant]
     Indication: Product used for unknown indication
     Route: 048
  20. ROBAXIN [Concomitant]
     Active Substance: METHOCARBAMOL
     Indication: Product used for unknown indication
     Dosage: TAKE 1 TABLET (750 180 TABLET 1 MG) BY MOUTH TWO TIMES A DAY?AS NEEDED FOR MUSCLE SPASMS FOR UP T...
     Route: 048
  21. BACTROBAN [Concomitant]
     Active Substance: MUPIROCIN CALCIUM
     Indication: Product used for unknown indication
     Dosage: 2%?APPLY 1G EXTERNALLY TO AFFECTED AREA IN THE MORNING AND 1 GAT NOON AND 1 G BEFORE BEDTIME
  22. PRILOSEC [Concomitant]
     Active Substance: OMEPRAZOLE MAGNESIUM
     Indication: Product used for unknown indication
     Dosage: TAKE 20 MG BY MOUTH
     Route: 048
  23. CHANTIX [Concomitant]
     Active Substance: VARENICLINE TARTRATE
     Indication: Product used for unknown indication
     Dosage: 0.5 MG (11)-1 MG (42) DOSE PACK (STARTER)?TAKE ACCORDING TO 1 KIT PACKAGE INSTRUCTIONS.
  24. LODINE [Concomitant]
     Active Substance: ETODOLAC
     Indication: Product used for unknown indication
     Dosage: 400 MG BY MOUTH

REACTIONS (15)
  - Dyspnoea [Recovering/Resolving]
  - Arthralgia [Recovering/Resolving]
  - Asthenia [Recovering/Resolving]
  - Pneumonia bacterial [Recovering/Resolving]
  - Fall [Unknown]
  - Nervousness [Recovering/Resolving]
  - Oxygen saturation decreased [Recovering/Resolving]
  - Breath sounds abnormal [Recovering/Resolving]
  - Influenza [Recovering/Resolving]
  - Pain [Recovered/Resolved]
  - Arthralgia [Unknown]
  - Pneumonia viral [Recovering/Resolving]
  - Arthralgia [Recovering/Resolving]
  - Peripheral swelling [Recovering/Resolving]
  - Arthralgia [Recovered/Resolved]

NARRATIVE: CASE EVENT DATE: 20240103
